FAERS Safety Report 12356145 (Version 1)
Quarter: 2016Q2

REPORT INFORMATION
  Report Type: Spontaneous
  Country: None (occurrence: US)
  Receive Date: 20160511
  Receipt Date: 20160511
  Transmission Date: 20160815
  Serious: No
  Sender: FDA-Public Use
  Company Number: US-QOL MEDICAL, LLC-1051925

PATIENT
  Age: 52 Year
  Weight: 65.91 kg

DRUGS (6)
  1. SUCRAID [Suspect]
     Active Substance: SACROSIDASE
     Indication: HICCUPS
     Route: 048
     Dates: start: 20150831, end: 20150912
  2. ZYRTEC-D ALLERGY AND CONGESTION [Concomitant]
     Active Substance: CETIRIZINE HYDROCHLORIDE\PSEUDOEPHEDRINE HYDROCHLORIDE
  3. MULTIVITAMIN [Concomitant]
     Active Substance: VITAMINS
  4. SINGULAIR [Concomitant]
     Active Substance: MONTELUKAST SODIUM
  5. LINZESS [Concomitant]
     Active Substance: LINACLOTIDE
  6. ZENPAP [Concomitant]

REACTIONS (2)
  - Somnolence [Recovered/Resolved]
  - Fatigue [Recovered/Resolved]

NARRATIVE: CASE EVENT DATE: 20150831
